FAERS Safety Report 9270473 (Version 1)
Quarter: 2013Q2

REPORT INFORMATION
  Report Type: Spontaneous
  Country: IN (occurrence: IN)
  Receive Date: 20130503
  Receipt Date: 20130503
  Transmission Date: 20140414
  Serious: Yes (Hospitalization)
  Sender: FDA-Public Use
  Company Number: IN-009507513-1212IND004475

PATIENT
  Age: 60 Year
  Sex: Female

DRUGS (1)
  1. VIRAFERONPEG [Suspect]
     Dosage: 80 MICROGRAM, ONCE A WEEK

REACTIONS (3)
  - Abdominal pain [Unknown]
  - Abdominal distension [Unknown]
  - Full blood count decreased [Unknown]
